FAERS Safety Report 4868248-X (Version None)
Quarter: 2005Q4

REPORT INFORMATION
  Report Type: 
  Country: None (occurrence: None)
  Receive Date: 20051227
  Receipt Date: 20051212
  Transmission Date: 20060501
  Serious: Yes (Hospitalization)
  Sender: FDA-Public Use
  Company Number: 200510915

PATIENT
  Sex: Female

DRUGS (1)
  1. BOTOX [Suspect]
     Indication: MUSCLE SPASTICITY
     Dosage: 380 UNITS ONCE IM
     Route: 030

REACTIONS (3)
  - COMA [None]
  - GAZE PALSY [None]
  - SHUNT MALFUNCTION [None]
